FAERS Safety Report 20039088 (Version 2)
Quarter: 2021Q4

REPORT INFORMATION
  Report Type: Report from Study
  Country: US (occurrence: US)
  Receive Date: 20211105
  Receipt Date: 20211123
  Transmission Date: 20220303
  Serious: Yes (Other)
  Sender: FDA-Public Use
  Company Number: US-BAYER-2021A237060

PATIENT
  Age: 69 Year
  Sex: Female

DRUGS (3)
  1. NEXAVAR [Suspect]
     Active Substance: SORAFENIB
     Indication: Metastases to liver
     Dosage: 400 MG, BID
     Route: 048
     Dates: start: 20211019
  2. NEXAVAR [Suspect]
     Active Substance: SORAFENIB
     Indication: Cholangiocarcinoma
     Dosage: 400 MG, UNK
     Dates: start: 20211024
  3. NEXAVAR [Suspect]
     Active Substance: SORAFENIB
     Indication: Metastases to liver
     Dosage: 200 MG, UNK
     Route: 003

REACTIONS (6)
  - Cough [Not Recovered/Not Resolved]
  - Abdominal pain [Not Recovered/Not Resolved]
  - Fatigue [Not Recovered/Not Resolved]
  - Cough [Not Recovered/Not Resolved]
  - Incorrect route of product administration [None]
  - Off label use [None]

NARRATIVE: CASE EVENT DATE: 20211018
